FAERS Safety Report 6156337-1 (Version None)
Quarter: 2009Q2

REPORT INFORMATION
  Report Type: 
  Country: None (occurrence: None)
  Receive Date: 20090415
  Receipt Date: 20090407
  Transmission Date: 20091009
  Serious: Yes (Life-Threatening)
  Sender: FDA-Public Use
  Company Number: FR-BAXTER-2009BH005752

PATIENT
  Age: 48 Year
  Sex: Female

DRUGS (5)
  1. HOLOXAN BAXTER [Suspect]
     Indication: SARCOMA
     Route: 042
     Dates: start: 20090302, end: 20090303
  2. ACTINOMYCIN D [Suspect]
     Indication: SARCOMA
     Route: 042
     Dates: start: 20090302, end: 20090303
  3. ONCOVIN [Suspect]
     Indication: SARCOMA
     Route: 042
     Dates: start: 20090302, end: 20090303
  4. ADRIAMYCIN RDF [Concomitant]
     Indication: DRUG USE FOR UNKNOWN INDICATION
     Route: 065
  5. CISPLATIN [Concomitant]
     Indication: DRUG USE FOR UNKNOWN INDICATION
     Route: 065

REACTIONS (2)
  - HYPOTONIA [None]
  - STATUS EPILEPTICUS [None]
